FAERS Safety Report 8236817-5 (Version None)
Quarter: 2012Q1

REPORT INFORMATION
  Report Type: 
  Country: None (occurrence: None)
  Receive Date: 20120327
  Receipt Date: 20120314
  Transmission Date: 20120608
  Serious: Yes (Other)
  Sender: FDA-Public Use
  Company Number: BR-ELI_LILLY_AND_COMPANY-BR201203004221

PATIENT
  Sex: Male

DRUGS (2)
  1. LANTUS [Concomitant]
     Dosage: 20 IU, EACH MORNING
     Route: 065
  2. HUMALOG [Suspect]
     Dosage: 4 IU, BID
     Route: 065

REACTIONS (2)
  - COMA [None]
  - HYPOGLYCAEMIA [None]
